FAERS Safety Report 21605273 (Version 1)
Quarter: 2022Q4

REPORT INFORMATION
  Report Type: Spontaneous
  Country: US (occurrence: US)
  Receive Date: 20221116
  Receipt Date: 20221116
  Transmission Date: 20230113
  Serious: No
  Sender: FDA-Public Use
  Company Number: US-UPSHER-SMITH LABORATORIES, LLC-2022USL00022

PATIENT
  Age: 63 Year
  Sex: Female

DRUGS (2)
  1. KLOR-CON [Suspect]
     Active Substance: POTASSIUM CHLORIDE
     Dosage: UNK ^HALF A DOSE,^ ONCE
  2. UNSPECIFIED INGREDIENT [Suspect]
     Active Substance: UNSPECIFIED INGREDIENT

REACTIONS (2)
  - Eructation [Unknown]
  - Reaction to colouring [Unknown]
